FAERS Safety Report 12211213 (Version 4)
Quarter: 2017Q1

REPORT INFORMATION
  Report Type: Spontaneous
  Country: CO (occurrence: CO)
  Receive Date: 20160325
  Receipt Date: 20170313
  Transmission Date: 20170428
  Serious: Yes (Other)
  Sender: FDA-Public Use
  Company Number: CO-AMGEN-COLSP2015106080

PATIENT
  Age: 45 Year
  Sex: Female

DRUGS (1)
  1. ENBREL [Suspect]
     Active Substance: ETANERCEPT
     Indication: PRODUCT USED FOR UNKNOWN INDICATION
     Dosage: 50 MG, WEEKLY
     Route: 058
     Dates: start: 201503, end: 2015

REACTIONS (4)
  - Oral neoplasm [Unknown]
  - Fistula discharge [Unknown]
  - Stomatitis necrotising [Unknown]
  - Oral infection [Not Recovered/Not Resolved]

NARRATIVE: CASE EVENT DATE: 2015
